FAERS Safety Report 8595691-8 (Version None)
Quarter: 2012Q3

REPORT INFORMATION
  Report Type: 
  Country: None (occurrence: None)
  Receive Date: 20120815
  Receipt Date: 20120802
  Transmission Date: 20120928
  Serious: No
  Sender: FDA-Public Use
  Company Number: US-ASTRAZENECA-2012SE49749

PATIENT
  Age: 49 Year
  Sex: Female
  Weight: 68 kg

DRUGS (4)
  1. CARISOPRODOL [Concomitant]
     Indication: MUSCLE RELAXANT THERAPY
  2. QUETIAPINE [Suspect]
     Indication: HALLUCINATION
     Route: 048
     Dates: start: 20120501
  3. NAPROXEN [Concomitant]
  4. ENBREL [Concomitant]

REACTIONS (4)
  - DRUG INEFFECTIVE FOR UNAPPROVED INDICATION [None]
  - HALLUCINATIONS, MIXED [None]
  - DRUG DOSE OMISSION [None]
  - OFF LABEL USE [None]
